FAERS Safety Report 6594950-8 (Version None)
Quarter: 2010Q1

REPORT INFORMATION
  Report Type: 
  Country: None (occurrence: None)
  Receive Date: 20100218
  Receipt Date: 20100218
  Transmission Date: 20100710
  Serious: No
  Sender: FDA-Public Use
  Company Number: None

PATIENT

DRUGS (1)
  1. SUTENT [Suspect]

REACTIONS (3)
  - BURNING SENSATION [None]
  - NEURALGIA [None]
  - QUADRIPARESIS [None]
